FAERS Safety Report 15339561 (Version 1)
Quarter: 2018Q3

REPORT INFORMATION
  Report Type: Spontaneous
  Country: US (occurrence: US)
  Receive Date: 20180827
  Receipt Date: 20180827
  Transmission Date: 20181010
  Serious: No
  Sender: FDA-Public Use
  Company Number: None

PATIENT
  Age: 68 Year
  Sex: Female

DRUGS (1)
  1. VERZENIO [Suspect]
     Active Substance: ABEMACICLIB
     Indication: BREAST CANCER FEMALE
     Route: 048

REACTIONS (5)
  - Nausea [None]
  - Diarrhoea [None]
  - Malaise [None]
  - Dehydration [None]
  - Decreased appetite [None]

NARRATIVE: CASE EVENT DATE: 20180726
